FAERS Safety Report 8885684 (Version 1)
Quarter: 2012Q4

REPORT INFORMATION
  Report Type: 
  Country: US (occurrence: US)
  Receive Date: 20121101
  Receipt Date: 20121101
  Transmission Date: 20130627
  Serious: Yes (Disabling, Other)
  Sender: FDA-Public Use
  Company Number: US-PFIZER INC-2012269838

PATIENT
  Age: 52 Year

DRUGS (10)
  1. LYRICA [Suspect]
     Dosage: 75 mg, (take three in am and two at bedtime)
  2. DIOVAN [Concomitant]
     Dosage: UNK
  3. FLOMAX [Concomitant]
     Dosage: UNK
  4. AVODART [Concomitant]
     Dosage: UNK
  5. BUPROPION [Concomitant]
     Dosage: UNK
  6. BUSPIRONE [Concomitant]
     Dosage: UNK
  7. NEXIUM [Concomitant]
     Dosage: UNK
  8. VIT D [Concomitant]
     Dosage: UNK
  9. RITALIN [Concomitant]
     Dosage: UNK
  10. OXYCONTIN [Concomitant]
     Dosage: UNK

REACTIONS (1)
  - Cerebrovascular accident [Unknown]
